FAERS Safety Report 6322494-7 (Version None)
Quarter: 2009Q3

REPORT INFORMATION
  Report Type: 
  Country: None (occurrence: None)
  Receive Date: 20090824
  Receipt Date: 20090227
  Transmission Date: 20100115
  Serious: No
  Sender: FDA-Public Use
  Company Number: US-ABBOTT-09P-163-0559147-00

PATIENT
  Sex: Male
  Weight: 93.07 kg

DRUGS (7)
  1. NIASPAN [Suspect]
     Indication: LOW DENSITY LIPOPROTEIN INCREASED
     Route: 048
     Dates: start: 20090101
  2. NIASPAN [Suspect]
     Indication: HIGH DENSITY LIPOPROTEIN DECREASED
     Route: 048
     Dates: start: 20081201, end: 20090101
  3. TRICOR [Concomitant]
     Indication: BLOOD TRIGLYCERIDES INCREASED
     Route: 048
  4. ALLOPURINOL [Concomitant]
     Indication: GOUT
     Dosage: UNKNOWN
     Dates: start: 20070701
  5. N-ACETYL-CYSTEINE [Concomitant]
     Indication: BLOOD HOMOCYSTEINE INCREASED
     Route: 048
  6. FOLBEE [Concomitant]
     Indication: BLOOD HOMOCYSTEINE INCREASED
  7. VITAMIN B1 TAB [Concomitant]
     Indication: MEDICAL DIET
     Route: 048

REACTIONS (2)
  - BLOOD CREATINE PHOSPHOKINASE INCREASED [None]
  - MUSCULAR WEAKNESS [None]
